FAERS Safety Report 19990020 (Version 3)
Quarter: 2022Q1

REPORT INFORMATION
  Report Type: Report from Study
  Country: AR (occurrence: AR)
  Receive Date: 20211025
  Receipt Date: 20220330
  Transmission Date: 20220423
  Serious: Yes (Hospitalization, Other)
  Sender: FDA-Public Use
  Company Number: AR-NOVARTISPH-NVSC2021AR172400

PATIENT
  Age: 51 Year
  Sex: Female

DRUGS (4)
  1. COSENTYX [Suspect]
     Active Substance: SECUKINUMAB
     Indication: Psoriatic arthropathy
     Dosage: 300 MG, QMO
     Route: 058
     Dates: start: 20210601
  2. COSENTYX [Suspect]
     Active Substance: SECUKINUMAB
     Dosage: 300 MG, QMO
     Route: 058
     Dates: start: 20210615
  3. COSENTYX [Suspect]
     Active Substance: SECUKINUMAB
     Dosage: 300 MG, QMO
     Route: 058
     Dates: start: 20210616
  4. COSENTYX [Suspect]
     Active Substance: SECUKINUMAB
     Dosage: 150 MG, Q2W (2 WEEKS)
     Route: 065

REACTIONS (23)
  - Blister [Unknown]
  - Pyrexia [Unknown]
  - Abscess limb [Unknown]
  - Pneumonia [Unknown]
  - Eye infarction [Unknown]
  - Pain [Unknown]
  - Hyperaesthesia [Unknown]
  - Dysstasia [Unknown]
  - Peripheral swelling [Unknown]
  - Back pain [Unknown]
  - Arthralgia [Not Recovered/Not Resolved]
  - Chest pain [Unknown]
  - Swelling face [Unknown]
  - Eye swelling [Unknown]
  - Lip infection [Unknown]
  - Dyspnoea [Unknown]
  - Abdominal pain [Unknown]
  - Constipation [Unknown]
  - Feeling abnormal [Unknown]
  - Tachycardia [Unknown]
  - Incorrect dose administered [Unknown]
  - Inappropriate schedule of product administration [Unknown]
  - Drug ineffective [Unknown]

NARRATIVE: CASE EVENT DATE: 20210616
